FAERS Safety Report 5862767-5 (Version None)
Quarter: 2008Q3

REPORT INFORMATION
  Report Type: 
  Country: None (occurrence: None)
  Receive Date: 20080820
  Receipt Date: 20080717
  Transmission Date: 20090109
  Serious: Yes (Hospitalization, Other)
  Sender: FDA-Public Use
  Company Number: 2008S1012634

PATIENT
  Age: 61 Year
  Sex: Female

DRUGS (12)
  1. RIVASTIGMINE [Suspect]
  2. TRAZODONE HCL [Suspect]
  3. CLONAZEPAM [Suspect]
  4. DEXAMPHETAMINE [Suspect]
  5. LAMOTRIGINE [Suspect]
  6. MEMANTINE HCL [Suspect]
  7. QUETIAPINE FUMARATE [Suspect]
  8. RISPERIDONE [Suspect]
  9. TRANYLCYPROMINE SULFATE [Suspect]
  10. ZOLPIDEM TARTRATE [Suspect]
  11. LANSOPRAZOLE [Concomitant]
  12. LEVOTHYROXINE SODIUM [Concomitant]

REACTIONS (1)
  - DYSTONIA [None]
